FAERS Safety Report 10096591 (Version 1)
Quarter: 2014Q2

REPORT INFORMATION
  Report Type: Report from Study
  Country: US (occurrence: US)
  Receive Date: 20140422
  Receipt Date: 20140422
  Transmission Date: 20141212
  Serious: Yes (Other)
  Sender: FDA-Public Use
  Company Number: US-PURDUE-USA-2014-0113186

PATIENT
  Age: 70 Year
  Sex: Female

DRUGS (1)
  1. OXY CR TAB [Suspect]
     Indication: EHLERS-DANLOS SYNDROME
     Dosage: 80 MG, SEE TEXT
     Route: 048

REACTIONS (1)
  - Crohn^s disease [Recovered/Resolved]
